FAERS Safety Report 6525741-1 (Version None)
Quarter: 2009Q4

REPORT INFORMATION
  Report Type: 
  Country: None (occurrence: None)
  Receive Date: 20091224
  Receipt Date: 20091210
  Transmission Date: 20100525
  Serious: Yes (Other)
  Sender: FDA-Public Use
  Company Number: DSA_42147_2009

PATIENT
  Age: 71 Year
  Sex: Female

DRUGS (6)
  1. BUPROPION HCL [Suspect]
     Indication: MAJOR DEPRESSION
     Dosage: (150 MG, TOTAL DAILY DOSE ORAL) ; (300 MG, TOTAL DAILY DOSE, ORAL)
     Route: 048
     Dates: start: 20091101, end: 20090101
  2. BUPROPION HCL [Suspect]
     Indication: MAJOR DEPRESSION
     Dosage: (150 MG, TOTAL DAILY DOSE ORAL) ; (300 MG, TOTAL DAILY DOSE, ORAL)
     Route: 048
     Dates: start: 20091101
  3. DACORTIN (DACORTIN-PREDNISONE) (NOT SPECIFIED) [Suspect]
     Indication: PNEUMONIA ASPIRATION
     Dosage: (60 MG, TOTAL DAILY DOSE) ; (30 MG, TOTAL DAILY DOSE)
     Dates: start: 20091101, end: 20090101
  4. DACORTIN (DACORTIN-PREDNISONE) (NOT SPECIFIED) [Suspect]
     Indication: PNEUMONIA ASPIRATION
     Dosage: (60 MG, TOTAL DAILY DOSE) ; (30 MG, TOTAL DAILY DOSE)
     Dates: start: 20091101
  5. DIAZEPAM [Concomitant]
  6. LAMICTAL [Concomitant]

REACTIONS (2)
  - DRUG INTERACTION [None]
  - GRAND MAL CONVULSION [None]
